FAERS Safety Report 13482279 (Version 2)
Quarter: 2017Q3

REPORT INFORMATION
  Report Type: Report from Study
  Country: US (occurrence: US)
  Receive Date: 20170424
  Receipt Date: 20170728
  Transmission Date: 20171127
  Serious: No
  Sender: FDA-Public Use
  Company Number: US-AMGEN-USASL2017051968

PATIENT
  Age: 67 Year
  Sex: Female

DRUGS (1)
  1. REPATHA [Suspect]
     Active Substance: EVOLOCUMAB
     Indication: HYPERCHOLESTEROLAEMIA
     Dosage: 420 MG, QMO
     Route: 065

REACTIONS (9)
  - Injection site warmth [Recovered/Resolved]
  - Rash pruritic [Unknown]
  - Injection site erythema [Recovered/Resolved]
  - Rash erythematous [Unknown]
  - Arthritis [Not Recovered/Not Resolved]
  - Pruritus [Unknown]
  - Drug dose omission [Unknown]
  - Injection site pruritus [Unknown]
  - Injection site swelling [Unknown]
